FAERS Safety Report 10133633 (Version 3)
Quarter: 2016Q1

REPORT INFORMATION
  Report Type: Report from Study
  Country: US (occurrence: US)
  Receive Date: 20140428
  Receipt Date: 20160111
  Transmission Date: 20160525
  Serious: Yes (Other)
  Sender: FDA-Public Use
  Company Number: US-ALEXION-A201304955

PATIENT

DRUGS (1)
  1. SOLIRIS [Suspect]
     Active Substance: ECULIZUMAB
     Indication: HAEMOLYTIC URAEMIC SYNDROME
     Dosage: 1200 MG, Q2W
     Route: 042
     Dates: start: 2012, end: 2013

REACTIONS (5)
  - Rash [Unknown]
  - Drug hypersensitivity [Unknown]
  - Eosinophilia [Unknown]
  - Blood pressure decreased [Unknown]
  - Liver disorder [Unknown]
